FAERS Safety Report 11595743 (Version 1)
Quarter: 2015Q4

REPORT INFORMATION
  Report Type: Spontaneous
  Country: GB (occurrence: GB)
  Receive Date: 20151006
  Receipt Date: 20151006
  Transmission Date: 20160304
  Serious: Yes (Death, Hospitalization, Other)
  Sender: FDA-Public Use
  Company Number: GB-ACCORD-034056

PATIENT
  Age: 53 Year
  Sex: Male

DRUGS (14)
  1. ZAPONEX [Suspect]
     Active Substance: CLOZAPINE
     Indication: SCHIZOPHRENIA
     Dosage: 150 MG MANE (EVERY MORNING) AND 200 MG NOCTE (EVERY NIGHT)
     Dates: start: 20070510, end: 20150901
  2. SALBUTAMOL [Concomitant]
     Active Substance: ALBUTEROL
     Route: 048
  3. PHOLCODINE [Concomitant]
     Active Substance: PHOLCODINE
  4. MST CONTINUS [Concomitant]
     Active Substance: MORPHINE SULFATE
  5. CISPLATIN. [Suspect]
     Active Substance: CISPLATIN
     Indication: NON-SMALL CELL LUNG CANCER STAGE IIIB
  6. VINORELBINE [Suspect]
     Active Substance: VINORELBINE\VINORELBINE TARTRATE
     Indication: NON-SMALL CELL LUNG CANCER STAGE IIIB
  7. NICORETTE [Concomitant]
     Active Substance: NICOTINE
     Route: 048
  8. EPHEDRINE. [Concomitant]
     Active Substance: EPHEDRINE
  9. VALPROIC ACID. [Concomitant]
     Active Substance: VALPROIC ACID
     Indication: MOOD SWINGS
     Route: 048
  10. MULTIVITAMIN [Concomitant]
     Active Substance: VITAMINS
     Route: 048
  11. TIOTROPIUM/TIOTROPIUM BROMIDE [Concomitant]
     Indication: INHALATION THERAPY
     Route: 048
  12. ATENOLOL/ATENOLOL HYDROCHLORIDE [Suspect]
     Active Substance: ATENOLOL
     Indication: BLOOD PRESSURE INCREASED
     Route: 048
  13. ORAMORPH [Concomitant]
     Active Substance: MORPHINE SULFATE
  14. SIMVASTATIN. [Concomitant]
     Active Substance: SIMVASTATIN
     Indication: BLOOD CHOLESTEROL INCREASED
     Route: 048

REACTIONS (7)
  - Infection [Fatal]
  - Product use issue [Unknown]
  - Neutrophil count increased [Unknown]
  - Non-small cell lung cancer stage IIIB [Fatal]
  - White blood cell count increased [Unknown]
  - White blood cell count decreased [Recovered/Resolved]
  - Neutropenic sepsis [Fatal]

NARRATIVE: CASE EVENT DATE: 20140311
